FAERS Safety Report 21007731 (Version 4)
Quarter: 2022Q3

REPORT INFORMATION
  Report Type: Spontaneous
  Country: US (occurrence: US)
  Receive Date: 20220627
  Receipt Date: 20220920
  Transmission Date: 20221027
  Serious: Yes (Other)
  Sender: FDA-Public Use
  Company Number: US-AMGEN-USASP2022106650

PATIENT
  Age: 68 Year
  Sex: Female

DRUGS (5)
  1. MVASI [Suspect]
     Active Substance: BEVACIZUMAB-AWWB
     Indication: Ovarian cancer metastatic
     Dosage: 700 MILLIGRAM, Q2WK
     Route: 042
     Dates: start: 20220127
  2. MVASI [Suspect]
     Active Substance: BEVACIZUMAB-AWWB
     Dosage: 700 MILLIGRAM, Q2WK
     Route: 042
  3. MVASI [Suspect]
     Active Substance: BEVACIZUMAB-AWWB
     Dosage: 700 MILLIGRAM, Q2WK
     Route: 042
     Dates: end: 20220616
  4. MVASI [Suspect]
     Active Substance: BEVACIZUMAB-AWWB
     Dosage: 700 MILLIGRAM, Q2WK
     Route: 042
     Dates: end: 20220616
  5. MVASI [Suspect]
     Active Substance: BEVACIZUMAB-AWWB
     Dosage: 700 MILLIGRAM, Q2WK
     Route: 042
     Dates: end: 20220616

REACTIONS (5)
  - Perirectal abscess [Unknown]
  - Off label use [Unknown]
  - Abdominal discomfort [Unknown]
  - Fatigue [Unknown]
  - Cough [Unknown]

NARRATIVE: CASE EVENT DATE: 20220127
